FAERS Safety Report 17337044 (Version 2)
Quarter: 2020Q1

REPORT INFORMATION
  Report Type: Spontaneous
  Country: DE (occurrence: DE)
  Receive Date: 20200129
  Receipt Date: 20200309
  Transmission Date: 20200409
  Serious: Yes (Other)
  Sender: FDA-Public Use
  Company Number: NVSC2020DE017462

PATIENT
  Sex: Female

DRUGS (5)
  1. DIOVAN [Suspect]
     Active Substance: VALSARTAN
     Dosage: 80 MG (AS NEEDED)
     Route: 065
  2. DIOVAN [Suspect]
     Active Substance: VALSARTAN
     Dosage: 160 MG, QD
     Route: 065
     Dates: start: 2019
  3. DIOVAN [Suspect]
     Active Substance: VALSARTAN
     Indication: PRODUCT USED FOR UNKNOWN INDICATION
     Dosage: 80 MG
     Route: 065
  4. CATAPRESAN [Concomitant]
     Active Substance: CLONIDINE
     Indication: HYPERTENSION
     Dosage: (AS NEEDED)
     Route: 065
  5. DIOVAN [Suspect]
     Active Substance: VALSARTAN
     Dosage: 160 MG, QD (1 DF)
     Route: 065

REACTIONS (2)
  - Blood pressure increased [Unknown]
  - Drug ineffective [Unknown]

NARRATIVE: CASE EVENT DATE: 2019
